FAERS Safety Report 7150598-8 (Version None)
Quarter: 2010Q4

REPORT INFORMATION
  Report Type: 
  Country: None (occurrence: None)
  Receive Date: 20101210
  Receipt Date: 20101203
  Transmission Date: 20110411
  Serious: Yes (Death, Other)
  Sender: FDA-Public Use
  Company Number: JP-PFIZER INC-2010164997

PATIENT
  Age: 76 Year
  Sex: Female

DRUGS (5)
  1. CAMPTOSAR [Suspect]
     Indication: SMALL INTESTINE CARCINOMA
     Dosage: UNK
     Route: 041
     Dates: start: 20080101
  2. OXALIPLATIN [Suspect]
     Indication: SMALL INTESTINE CARCINOMA
     Dosage: UNK
     Route: 041
     Dates: start: 20070801
  3. FLUOROURACIL [Suspect]
     Indication: SMALL INTESTINE CARCINOMA
     Dosage: UNK
     Route: 040
     Dates: start: 20070801
  4. FLUOROURACIL [Suspect]
     Dosage: UNK
     Route: 041
     Dates: start: 20070801
  5. CALCIUM LEVOFOLINATE [Concomitant]
     Indication: SMALL INTESTINE CARCINOMA
     Dosage: UNK
     Route: 041
     Dates: start: 20070801

REACTIONS (4)
  - BONE MARROW FAILURE [None]
  - DEATH [None]
  - DECREASED APPETITE [None]
  - STOMATITIS [None]
